FAERS Safety Report 19882826 (Version 1)
Quarter: 2021Q3

REPORT INFORMATION
  Report Type: Report from Study
  Country: None (occurrence: CA)
  Receive Date: 20210924
  Receipt Date: 20210924
  Transmission Date: 20211014
  Serious: Yes (Hospitalization)
  Sender: FDA-Public Use
  Company Number: CA-ABBVIE-21K-028-4088649-00

PATIENT
  Age: 50 Year
  Sex: Female

DRUGS (1)
  1. HUMIRA [Suspect]
     Active Substance: ADALIMUMAB
     Indication: CROHN^S DISEASE
     Route: 058
     Dates: start: 20180830

REACTIONS (9)
  - Blood count abnormal [Unknown]
  - Injection site pain [Not Recovered/Not Resolved]
  - Haemorrhage [Recovered/Resolved]
  - Skin burning sensation [Unknown]
  - Haemorrhage [Not Recovered/Not Resolved]
  - Gait inability [Recovering/Resolving]
  - Guillain-Barre syndrome [Recovered/Resolved]
  - Blood iron decreased [Unknown]
  - Pigmentation disorder [Not Recovered/Not Resolved]

NARRATIVE: CASE EVENT DATE: 202012
